FAERS Safety Report 25327420 (Version 1)
Quarter: 2025Q2

REPORT INFORMATION
  Report Type: Report from Study
  Country: US (occurrence: US)
  Receive Date: 20250517
  Receipt Date: 20250517
  Transmission Date: 20250716
  Serious: No
  Sender: SANDOZ
  Company Number: US-SANDOZ-SDZ2025US031485

PATIENT
  Age: 47 Year
  Sex: Male

DRUGS (1)
  1. HYRIMOZ [Suspect]
     Active Substance: ADALIMUMAB-ADAZ
     Indication: Product used for unknown indication
     Dosage: 40 MG, Q2W
     Route: 058

REACTIONS (2)
  - Injection site pain [Unknown]
  - Injection site paraesthesia [Unknown]

NARRATIVE: CASE EVENT DATE: 20250505
